FAERS Safety Report 18152298 (Version 1)
Quarter: 2020Q3

REPORT INFORMATION
  Report Type: Spontaneous
  Country: US (occurrence: US)
  Receive Date: 20200814
  Receipt Date: 20200814
  Transmission Date: 20201103
  Serious: Yes (Hospitalization)
  Sender: FDA-Public Use
  Company Number: US-SEATTLE GENETICS-2020SGN03546

PATIENT
  Sex: Female

DRUGS (5)
  1. XELODA [Suspect]
     Active Substance: CAPECITABINE
     Indication: BREAST CANCER FEMALE
     Route: 048
  2. ATROPINE SULFATE W/DIPHENOXYLATE HYDROCHLOR. [Suspect]
     Active Substance: ATROPINE\DIPHENOXYLATE HYDROCHLORIDE
     Indication: DIARRHOEA
  3. TUKYSA [Suspect]
     Active Substance: TUCATINIB
     Indication: BREAST CANCER FEMALE
  4. CEFTRIAXONE. [Concomitant]
     Active Substance: CEFTRIAXONE
  5. ZOLPIDEM TARTATE [Concomitant]
     Active Substance: ZOLPIDEM TARTRATE

REACTIONS (15)
  - Thrombosis [Unknown]
  - Transfusion [Unknown]
  - Decubitus ulcer [Unknown]
  - Dry mouth [Unknown]
  - Irritability [Unknown]
  - Mouth ulceration [Unknown]
  - Diarrhoea [Not Recovered/Not Resolved]
  - Constipation [Unknown]
  - Anxiety [Unknown]
  - Abdominal distension [Unknown]
  - Insomnia [Unknown]
  - Ocular icterus [Unknown]
  - Neuropathy peripheral [Unknown]
  - Skin laceration [Unknown]
  - Confusional state [Unknown]
